FAERS Safety Report 15681833 (Version 1)
Quarter: 2018Q4

REPORT INFORMATION
  Report Type: Spontaneous
  Country: US (occurrence: US)
  Receive Date: 20181203
  Receipt Date: 20181203
  Transmission Date: 20190205
  Serious: Yes (Other)
  Sender: FDA-Public Use
  Company Number: PHEH2018US049782

PATIENT
  Sex: Male

DRUGS (3)
  1. BACLOFEN. [Interacting]
     Active Substance: BACLOFEN
     Indication: PRODUCT USED FOR UNKNOWN INDICATION
     Dosage: UNK
     Route: 065
  2. GABAPENTIN. [Interacting]
     Active Substance: GABAPENTIN
     Indication: PAIN
     Dosage: UNK
     Route: 065
  3. GILENYA [Suspect]
     Active Substance: FINGOLIMOD HYDROCHLORIDE
     Indication: PRODUCT USED FOR UNKNOWN INDICATION
     Dosage: 0.5 MG, UNK
     Route: 048

REACTIONS (9)
  - Cardiovascular disorder [Unknown]
  - Hypohidrosis [Unknown]
  - Underweight [Recovering/Resolving]
  - Pain [Unknown]
  - Blepharitis [Unknown]
  - Walking disability [Unknown]
  - Eye swelling [Unknown]
  - Heart rate decreased [Unknown]
  - Body temperature increased [Unknown]
